FAERS Safety Report 14958506 (Version 2)
Quarter: 2018Q2

REPORT INFORMATION
  Report Type: Spontaneous
  Country: DE (occurrence: DE)
  Receive Date: 20180531
  Receipt Date: 20180625
  Transmission Date: 20180711
  Serious: Yes (Other)
  Sender: FDA-Public Use
  Company Number: DE-AUROBINDO-AUR-APL-2018-028483

PATIENT

DRUGS (9)
  1. CELECOXIB. [Suspect]
     Active Substance: CELECOXIB
     Indication: EWING^S SARCOMA
     Dosage: 200 MG, UNK
     Route: 048
  2. IMATINIB [Suspect]
     Active Substance: IMATINIB
     Indication: EWING^S SARCOMA
     Dosage: 400 MG, UNK
     Route: 048
  3. DASATINIB. [Suspect]
     Active Substance: DASATINIB
     Dosage: 100 MG, UNK
     Route: 065
  4. IMATINIB [Suspect]
     Active Substance: IMATINIB
     Dosage: 400 MG, UNK
     Route: 048
  5. CELECOXIB. [Suspect]
     Active Substance: CELECOXIB
     Dosage: 200 MG, UNK
     Route: 048
  6. DASATINIB. [Suspect]
     Active Substance: DASATINIB
     Indication: EWING^S SARCOMA
     Dosage: 100 MG, UNK
     Route: 048
  7. IMATINIB [Suspect]
     Active Substance: IMATINIB
     Dosage: 200 UNK, UNK
     Route: 048
  8. EPIRUBICIN [Suspect]
     Active Substance: EPIRUBICIN
     Indication: EWING^S SARCOMA
     Dosage: 100 MG/M2, UNK
     Route: 042
  9. EPIRUBICIN [Suspect]
     Active Substance: EPIRUBICIN
     Dosage: 100 MG/M2, UNK
     Route: 042

REACTIONS (10)
  - Nausea [Unknown]
  - Malignant neoplasm progression [Unknown]
  - Anxiety [Unknown]
  - Lymphopenia [Unknown]
  - Depression [Unknown]
  - Thrombocytopenia [Unknown]
  - Vomiting [Unknown]
  - Anaemia [Unknown]
  - Product use in unapproved indication [Unknown]
  - Neutropenia [Unknown]
